FAERS Safety Report 18848464 (Version 3)
Quarter: 2022Q3

REPORT INFORMATION
  Report Type: Report from Study
  Country: US (occurrence: US)
  Receive Date: 20210204
  Receipt Date: 20220701
  Transmission Date: 20221027
  Serious: Yes (Other)
  Sender: FDA-Public Use
  Company Number: US-SHIRE-US202014199

PATIENT
  Sex: Male

DRUGS (2)
  1. HUMAN IMMUNOGLOBULIN G [Suspect]
     Active Substance: HUMAN IMMUNOGLOBULIN G
     Indication: Primary immunodeficiency syndrome
     Dosage: UNK
     Route: 042
  2. HUMAN IMMUNOGLOBULIN G [Suspect]
     Active Substance: HUMAN IMMUNOGLOBULIN G
     Indication: Thalassaemia alpha

REACTIONS (6)
  - Neoplasm malignant [Unknown]
  - Lymphoma [Unknown]
  - Surgery [Unknown]
  - Fatigue [Unknown]
  - Off label use [Unknown]
  - Skin lesion [Unknown]

NARRATIVE: CASE EVENT DATE: 20210101
